FAERS Safety Report 5579369-0 (Version None)
Quarter: 2008Q1

REPORT INFORMATION
  Report Type: 
  Country: None (occurrence: None)
  Receive Date: 20080102
  Receipt Date: 20071219
  Transmission Date: 20080703
  Serious: Yes (Death, Other)
  Sender: FDA-Public Use
  Company Number: JP-ELI_LILLY_AND_COMPANY-JP200712004329

PATIENT
  Age: 56 Year
  Sex: Male

DRUGS (5)
  1. GEMCITABINE HCL [Suspect]
     Indication: PANCREATIC CARCINOMA NON-RESECTABLE
  2. TS 1 [Concomitant]
     Indication: PANCREATIC CARCINOMA NON-RESECTABLE
     Dosage: 80 MG, DAILY (1/D)
     Route: 048
     Dates: start: 20061114, end: 20061128
  3. OXYCODONE HCL [Concomitant]
     Indication: CANCER PAIN
     Dosage: 20 MG, DAILY (1/D)
     Route: 048
  4. THERAPEUTIC RADIOPHARMACEUTICALS [Concomitant]
     Indication: GASTROINTESTINAL OBSTRUCTION
     Dosage: 20 D/F, DAILY (1/D)
     Route: 033
     Dates: start: 20061218, end: 20061218
  5. MORPHINE [Concomitant]
     Indication: CANCER PAIN
     Dosage: 20 MG, DAILY (1/D)
     Route: 054

REACTIONS (5)
  - GASTROINTESTINAL OBSTRUCTION [None]
  - INTRA-ABDOMINAL HAEMORRHAGE [None]
  - PANCREATITIS NECROTISING [None]
  - TUMOUR INVASION [None]
  - VOMITING [None]
